FAERS Safety Report 7246190-7 (Version None)
Quarter: 2011Q1

REPORT INFORMATION
  Report Type: 
  Country: None (occurrence: None)
  Receive Date: 20110126
  Receipt Date: 20110117
  Transmission Date: 20110831
  Serious: Yes (Other)
  Sender: FDA-Public Use
  Company Number: B0660592A

PATIENT
  Sex: Female
  Weight: 55 kg

DRUGS (9)
  1. TYKERB [Suspect]
     Dosage: 750MG PER DAY
     Route: 048
     Dates: start: 20100708, end: 20100818
  2. ADALAT [Concomitant]
     Indication: HYPERTENSION
     Route: 048
  3. XELODA [Suspect]
     Dosage: 3000MG PER DAY
     Route: 048
     Dates: start: 20100106, end: 20100310
  4. TYKERB [Suspect]
     Dosage: 1000MG PER DAY
     Route: 048
     Dates: start: 20100527, end: 20100707
  5. XELODA [Suspect]
     Dosage: 2400MG PER DAY
     Route: 048
     Dates: start: 20100527, end: 20100630
  6. PYDOXAL [Concomitant]
     Route: 048
     Dates: start: 20100106, end: 20100818
  7. CONSTAN [Concomitant]
     Indication: ANXIETY DISORDER
     Route: 048
  8. TYKERB [Suspect]
     Indication: BREAST CANCER
     Dosage: 1250MG PER DAY
     Route: 048
     Dates: start: 20100106, end: 20100324
  9. XELODA [Suspect]
     Dosage: 1800MG PER DAY
     Route: 048
     Dates: start: 20100708, end: 20100818

REACTIONS (1)
  - PALMAR-PLANTAR ERYTHRODYSAESTHESIA SYNDROME [None]
